FAERS Safety Report 5158698-9 (Version None)
Quarter: 2006Q4

REPORT INFORMATION
  Report Type: 
  Country: None (occurrence: None)
  Receive Date: 20061128
  Receipt Date: 20060821
  Transmission Date: 20070319
  Serious: Yes (Other)
  Sender: FDA-Public Use
  Company Number: PHNU2006DE02866

PATIENT
  Age: 70 Year
  Sex: Female
  Weight: 76 kg

DRUGS (5)
  1. ALKERAN [Concomitant]
     Indication: PLASMACYTOMA
     Dosage: 23 MG 6 TIMES A WEEK
     Route: 065
     Dates: start: 20030617, end: 20031202
  2. PREDNISOLONE [Concomitant]
     Indication: PLASMACYTOMA
     Route: 065
     Dates: start: 20030617
  3. PREDNISOLONE [Concomitant]
     Route: 065
     Dates: start: 20050509
  4. BENDAMUSTINE [Concomitant]
     Indication: PLASMACYTOMA
     Dosage: 200 MG AT 12 TIMES
     Route: 065
     Dates: start: 20050509, end: 20051102
  5. ZOMETA [Suspect]
     Indication: MULTIPLE MYELOMA
     Dosage: 4 MG, EVERY 4 WEEKS
     Route: 042
     Dates: start: 20030622, end: 20060524

REACTIONS (4)
  - DENTAL TREATMENT [None]
  - OSTEONECROSIS [None]
  - SWELLING [None]
  - X-RAY ABNORMAL [None]
